FAERS Safety Report 18813376 (Version 2)
Quarter: 2021Q2

REPORT INFORMATION
  Report Type: Report from Study
  Country: None (occurrence: PA)
  Receive Date: 20210131
  Receipt Date: 20210403
  Transmission Date: 20210717
  Serious: Yes (Other)
  Sender: FDA-Public Use
  Company Number: PA-ABBVIE-21K-125-3749292-00

PATIENT
  Age: 65 Year
  Sex: Male
  Weight: 66 kg

DRUGS (1)
  1. HUMIRA [Suspect]
     Active Substance: ADALIMUMAB
     Indication: COLITIS ULCERATIVE
     Route: 058
     Dates: start: 20200206, end: 20210218

REACTIONS (7)
  - Haematochezia [Recovered/Resolved]
  - Inflammation [Recovering/Resolving]
  - Frequent bowel movements [Recovering/Resolving]
  - Therapeutic product effect incomplete [Recovering/Resolving]
  - Flatulence [Recovering/Resolving]
  - Colitis ulcerative [Recovering/Resolving]
  - Product lot number issue [Unknown]

NARRATIVE: CASE EVENT DATE: 20200206
